FAERS Safety Report 22118191 (Version 1)
Quarter: 2023Q1

REPORT INFORMATION
  Report Type: Spontaneous
  Country: US (occurrence: US)
  Receive Date: 20230321
  Receipt Date: 20230321
  Transmission Date: 20230417
  Serious: No
  Sender: FDA-Public Use
  Company Number: US-UNITED THERAPEUTICS-UNT-2023-004158

PATIENT
  Age: 65 Year
  Sex: Male
  Weight: 68.934 kg

DRUGS (6)
  1. REMODULIN [Suspect]
     Active Substance: TREPROSTINIL
     Indication: Pulmonary arterial hypertension
     Dosage: 0.037 ?G/KG (SELF-FILLED CASSETTE WITH 2.9ML AT A RATE OF 34 MCL/HOUR), CONTINUING
     Route: 058
  2. REMODULIN [Suspect]
     Active Substance: TREPROSTINIL
     Dosage: 0.038 ?G/KG (SELF FILL CASSETTE WITH 3 ML; AT A PUMP RATE OF 35 MCL/HOUR), CONTINUING
     Route: 058
  3. REMODULIN [Suspect]
     Active Substance: TREPROSTINIL
     Dosage: UNK, CONTINUING
     Route: 058
     Dates: start: 20230119
  4. OFEV [Concomitant]
     Active Substance: NINTEDANIB
     Indication: Product used for unknown indication
     Dosage: UNK
     Route: 065
  5. OPSUMIT [Concomitant]
     Active Substance: MACITENTAN
     Indication: Product used for unknown indication
     Dosage: UNK
     Route: 065
  6. SILDENAFIL [Concomitant]
     Active Substance: SILDENAFIL
     Indication: Product used for unknown indication
     Dosage: UNK
     Route: 065

REACTIONS (3)
  - Infusion site pain [Unknown]
  - Infusion site erythema [Unknown]
  - Infusion site haemorrhage [Unknown]

NARRATIVE: CASE EVENT DATE: 20230301
